FAERS Safety Report 12360339 (Version 1)
Quarter: 2016Q2

REPORT INFORMATION
  Report Type: Spontaneous
  Country: US (occurrence: US)
  Receive Date: 20160512
  Receipt Date: 20160512
  Transmission Date: 20160815
  Serious: No
  Sender: FDA-Public Use
  Company Number: US-TARO-2015TAR01056

PATIENT
  Age: 7 Week
  Sex: Male
  Weight: 5.16 kg

DRUGS (2)
  1. NYSTATIN SOLUTION [Suspect]
     Active Substance: NYSTATIN
     Indication: CANDIDA INFECTION
     Dosage: 1 TSP, 4X/DAY
     Route: 048
     Dates: start: 20151026, end: 20151030
  2. CLOTRIMAZOLE VAGINAL CREAM USP 2% 3 DAY [Suspect]
     Active Substance: CLOTRIMAZOLE
     Indication: CANDIDA INFECTION
     Dosage: ONE FINGERFUL ON THE BOTTLE NIPPLE AND A LITTLE ON THE ROOF OF THE MOUTH, 2X/DAY
     Route: 048
     Dates: start: 20151030, end: 2015

REACTIONS (5)
  - Diarrhoea [Not Recovered/Not Resolved]
  - Vomiting [Not Recovered/Not Resolved]
  - Irritability [Not Recovered/Not Resolved]
  - Off label use [Recovered/Resolved]
  - Malaise [Unknown]

NARRATIVE: CASE EVENT DATE: 201510
